FAERS Safety Report 8103461-X (Version None)
Quarter: 2012Q1

REPORT INFORMATION
  Report Type: 
  Country: None (occurrence: None)
  Receive Date: 20120201
  Receipt Date: 20120126
  Transmission Date: 20120608
  Serious: Yes (Disabling, Other)
  Sender: FDA-Public Use
  Company Number: US-ROCHE-1012035

PATIENT
  Sex: Male
  Weight: 108.05 kg

DRUGS (6)
  1. AMNESTEEM [Suspect]
     Indication: ACNE
     Dates: start: 19890101
  2. ZOLOFT [Concomitant]
  3. ACCUTANE [Suspect]
     Dates: start: 20030430, end: 20030728
  4. ACCUTANE [Suspect]
     Indication: ACNE
     Dates: start: 19890101
  5. ACCUTANE [Suspect]
     Dates: start: 20030929, end: 20031130
  6. AMNESTEEM [Suspect]
     Dates: start: 20030430, end: 20031130

REACTIONS (5)
  - DEPRESSION [None]
  - COLITIS ULCERATIVE [None]
  - GASTROINTESTINAL INJURY [None]
  - SUICIDAL IDEATION [None]
  - INFLAMMATORY BOWEL DISEASE [None]
